FAERS Safety Report 21943936 (Version 1)
Quarter: 2023Q1

REPORT INFORMATION
  Report Type: Report from Study
  Country: CN (occurrence: CN)
  Receive Date: 20230202
  Receipt Date: 20230202
  Transmission Date: 20230418
  Serious: Yes (Life-Threatening, Hospitalization, Other)
  Sender: FDA-Public Use
  Company Number: CN-ALS-000868

PATIENT
  Age: 72 Year
  Sex: Female

DRUGS (1)
  1. METFORMIN [Suspect]
     Active Substance: METFORMIN HYDROCHLORIDE
     Indication: Type 2 diabetes mellitus
     Route: 048

REACTIONS (13)
  - Chronic kidney disease [Not Recovered/Not Resolved]
  - Ketoacidosis [Unknown]
  - Lactic acidosis [Recovered/Resolved]
  - Haemofiltration [Unknown]
  - Arteriosclerosis coronary artery [Unknown]
  - Coma [Unknown]
  - Pleural effusion [Unknown]
  - Aeromonas infection [Recovering/Resolving]
  - Gastrointestinal haemorrhage [Unknown]
  - Gastroenteritis [Unknown]
  - Alanine aminotransferase increased [Unknown]
  - Aspartate aminotransferase increased [Unknown]
  - Metabolic acidosis [Unknown]
